FAERS Safety Report 8878947 (Version 8)
Quarter: 2016Q4

REPORT INFORMATION
  Report Type: Spontaneous
  Country: US (occurrence: US)
  Receive Date: 20121026
  Receipt Date: 20161027
  Transmission Date: 20170207
  Serious: Yes (Hospitalization, Disabling, Other)
  Sender: FDA-Public Use
  Company Number: US-009507513-1210USA010204

PATIENT
  Sex: Female

DRUGS (8)
  1. ALENDRONATE SODIUM. [Suspect]
     Active Substance: ALENDRONATE SODIUM
     Indication: OSTEOPOROSIS
     Dosage: 70 MG, QW
     Route: 048
     Dates: start: 20090817, end: 20111222
  2. FOSAMAX PLUS D [Suspect]
     Active Substance: ALENDRONATE SODIUM\CHOLECALCIFEROL
     Indication: OSTEOPOROSIS
     Dosage: 70 MG-2800IU, QW
     Route: 048
     Dates: start: 20080903
  3. ESTROGEN NOS [Concomitant]
     Active Substance: ESTROGENS
     Dosage: UNK
     Dates: start: 1994, end: 2006
  4. FOSAMAX [Suspect]
     Active Substance: ALENDRONATE SODIUM
     Indication: OSTEOPOROSIS
     Dosage: 10 MG, QAM
     Route: 048
     Dates: start: 1997, end: 201201
  5. FOSAMAX [Suspect]
     Active Substance: ALENDRONATE SODIUM
     Indication: OSTEOPOROSIS
     Dosage: 70 MG, QW
     Route: 048
     Dates: start: 20090817, end: 20111222
  6. OMEPRAZOLE. [Concomitant]
     Active Substance: OMEPRAZOLE
     Dosage: 20 MG, UNK
     Dates: start: 20021226, end: 20040406
  7. PRILOSEC [Concomitant]
     Active Substance: OMEPRAZOLE MAGNESIUM
     Dosage: 20 MG, UNK
     Dates: start: 20020223, end: 20021126
  8. MELOXICAM. [Concomitant]
     Active Substance: MELOXICAM
     Indication: INFLAMMATORY PAIN
     Dosage: UNK
     Dates: start: 2007

REACTIONS (31)
  - Rectocele [Unknown]
  - Carpal tunnel decompression [Unknown]
  - Rib fracture [Unknown]
  - Body height decreased [Unknown]
  - Intramedullary rod insertion [Not Recovered/Not Resolved]
  - Surgery [Unknown]
  - Atypical femur fracture [Not Recovered/Not Resolved]
  - Hypertension [Unknown]
  - Fall [Unknown]
  - Low turnover osteopathy [Not Recovered/Not Resolved]
  - Stress [Unknown]
  - Clavicle fracture [Unknown]
  - Genital disorder female [Unknown]
  - Osteopenia [Unknown]
  - Arthralgia [Unknown]
  - Osteoporosis [Not Recovered/Not Resolved]
  - Surgery [Unknown]
  - Type 2 diabetes mellitus [Unknown]
  - Urinary incontinence [Unknown]
  - Nasal septal operation [Unknown]
  - Rib fracture [Unknown]
  - Clavicle fracture [Unknown]
  - Dyslipidaemia [Unknown]
  - Sleep apnoea syndrome [Unknown]
  - Blood calcium decreased [Unknown]
  - Femur fracture [Not Recovered/Not Resolved]
  - Bone density decreased [Unknown]
  - Fall [Unknown]
  - Rib fracture [Unknown]
  - Intramedullary rod insertion [Not Recovered/Not Resolved]
  - Sleep disorder [Unknown]

NARRATIVE: CASE EVENT DATE: 2002
